FAERS Safety Report 7248344-2 (Version None)
Quarter: 2011Q1

REPORT INFORMATION
  Report Type: 
  Country: None (occurrence: None)
  Receive Date: 20110127
  Receipt Date: 20110117
  Transmission Date: 20110831
  Serious: Yes (Other)
  Sender: FDA-Public Use
  Company Number: PHHY2010US55800

PATIENT
  Sex: Male

DRUGS (1)
  1. GLEEVEC [Suspect]
     Dosage: 400 MG, DAILY
     Route: 048
     Dates: start: 20100804

REACTIONS (4)
  - FEELING ABNORMAL [None]
  - MUSCLE SPASMS [None]
  - BLOOD AMYLASE INCREASED [None]
  - LIPASE INCREASED [None]
